FAERS Safety Report 20920918 (Version 1)
Quarter: 2022Q2

REPORT INFORMATION
  Report Type: Spontaneous
  Country: RS (occurrence: RS)
  Receive Date: 20220606
  Receipt Date: 20220606
  Transmission Date: 20220721
  Serious: Yes (Death)
  Sender: FDA-Public Use
  Company Number: RS-002147023-NVSC2022RS121259

PATIENT

DRUGS (1)
  1. RUXOLITINIB [Suspect]
     Active Substance: RUXOLITINIB
     Indication: Primary myelofibrosis
     Route: 065

REACTIONS (3)
  - Malignant neoplasm progression [Fatal]
  - Primary myelofibrosis [Fatal]
  - Spleen procedural complication [Fatal]
